FAERS Safety Report 5522222-9 (Version None)
Quarter: 2007Q4

REPORT INFORMATION
  Report Type: 
  Country: None (occurrence: None)
  Receive Date: 20071120
  Receipt Date: 20071106
  Transmission Date: 20080405
  Serious: Yes (Death, Hospitalization)
  Sender: FDA-Public Use
  Company Number: US-ELI_LILLY_AND_COMPANY-US200709001822

PATIENT
  Sex: Female

DRUGS (2)
  1. FORTEO [Suspect]
     Indication: OSTEOPOROSIS
     Dosage: UNK, UNK
     Dates: end: 20060101
  2. FOSAMAX [Concomitant]

REACTIONS (7)
  - ANOREXIA [None]
  - DEATH [None]
  - DENTAL TREATMENT [None]
  - HOSPITALISATION [None]
  - MALAISE [None]
  - PAIN IN JAW [None]
  - WEIGHT DECREASED [None]
